FAERS Safety Report 4954811-4 (Version None)
Quarter: 2006Q1

REPORT INFORMATION
  Report Type: 
  Country: None (occurrence: None)
  Receive Date: 20060327
  Receipt Date: 20050706
  Transmission Date: 20060701
  Serious: Yes (Other)
  Sender: FDA-Public Use
  Company Number: US-MERCK-0507USA01094

PATIENT
  Age: 69 Year
  Sex: Male
  Weight: 105 kg

DRUGS (6)
  1. VIOXX [Suspect]
     Route: 048
  2. K-DUR 10 [Concomitant]
     Route: 048
  3. LASIX [Concomitant]
     Route: 048
  4. CATAPRES [Concomitant]
     Route: 048
  5. NORVASC [Concomitant]
     Route: 048
  6. ATENOLOL [Concomitant]
     Route: 065

REACTIONS (4)
  - CARDIAC DISORDER [None]
  - CEREBROVASCULAR ACCIDENT [None]
  - HEART DISEASE CONGENITAL [None]
  - HYPERTENSION [None]
